FAERS Safety Report 12069856 (Version 1)
Quarter: 2016Q1

REPORT INFORMATION
  Report Type: Spontaneous
  Country: US (occurrence: US)
  Receive Date: 20160211
  Receipt Date: 20160211
  Transmission Date: 20160526
  Serious: Yes (Hospitalization)
  Sender: FDA-Public Use
  Company Number: US-EMD SERONO-7080737

PATIENT
  Age: 60 Year
  Sex: Female
  Weight: 77 kg

DRUGS (4)
  1. REBIF [Suspect]
     Active Substance: INTERFERON BETA-1A
     Route: 058
     Dates: start: 201601
  2. SIMVASTATIN. [Concomitant]
     Active Substance: SIMVASTATIN
     Indication: HYPERLIPIDAEMIA
  3. REBIF [Suspect]
     Active Substance: INTERFERON BETA-1A
     Indication: MULTIPLE SCLEROSIS
     Route: 058
     Dates: start: 20080205
  4. ENALAPRIL [Concomitant]
     Active Substance: ENALAPRIL
     Indication: HYPERTENSION

REACTIONS (9)
  - Nasopharyngitis [Unknown]
  - Injection site haemorrhage [Not Recovered/Not Resolved]
  - Clostridium difficile infection [Recovered/Resolved]
  - Pain in extremity [Unknown]
  - Atrial fibrillation [Recovered/Resolved]
  - Viral infection [Unknown]
  - White blood cell count decreased [Unknown]
  - Injection site pain [Recovering/Resolving]
  - Liver function test abnormal [Unknown]

NARRATIVE: CASE EVENT DATE: 201012
